FAERS Safety Report 17333122 (Version 1)
Quarter: 2020Q1

REPORT INFORMATION
  Report Type: Spontaneous
  Country: US (occurrence: US)
  Receive Date: 20200128
  Receipt Date: 20200128
  Transmission Date: 20200409
  Serious: No
  Sender: FDA-Public Use
  Company Number: US-TOLMAR, INC.-19US019575

PATIENT
  Age: 21 Year
  Sex: Female

DRUGS (1)
  1. IMIQUIMOD. [Suspect]
     Active Substance: IMIQUIMOD
     Indication: CUTANEOUS T-CELL LYMPHOMA
     Dosage: UNK, QD
     Route: 061

REACTIONS (5)
  - Application site irritation [Recovered/Resolved]
  - Skin ulcer [Recovered/Resolved]
  - Application site pruritus [Recovered/Resolved]
  - Skin erosion [Recovered/Resolved]
  - Skin induration [Recovered/Resolved]
